FAERS Safety Report 23881321 (Version 3)
Quarter: 2024Q2

REPORT INFORMATION
  Report Type: Report from Study
  Country: JP (occurrence: JP)
  Receive Date: 20240521
  Receipt Date: 20240624
  Transmission Date: 20240715
  Serious: Yes (Other)
  Sender: FDA-Public Use
  Company Number: JP-Eisai-EC-2024-165796

PATIENT
  Age: 82 Year
  Sex: Female

DRUGS (8)
  1. LEQEMBI [Suspect]
     Active Substance: LECANEMAB-IRMB
     Indication: Dementia Alzheimer^s type
     Route: 041
     Dates: start: 20240430, end: 20240430
  2. AMLODIPINE BESYLATE\CANDESARTAN CILEXETIL [Concomitant]
     Active Substance: AMLODIPINE BESYLATE\CANDESARTAN CILEXETIL
     Dosage: DOSE UNKNOWN
  3. DONEPEZIL HYDROCHLORIDE [Concomitant]
     Active Substance: DONEPEZIL HYDROCHLORIDE
     Dosage: DOSE UNKNOWN
  4. SERTRALINE [Concomitant]
     Active Substance: SERTRALINE HYDROCHLORIDE
     Dosage: DOSE UNKNOWN
  5. MAGNESIUM OXIDE [Concomitant]
     Active Substance: MAGNESIUM OXIDE
     Dosage: DOSE UNKNOWN
  6. ALFACALCIDOL [Concomitant]
     Active Substance: ALFACALCIDOL
     Dosage: DOSE UNKNOWN
  7. ALLEGRA [Concomitant]
     Active Substance: FEXOFENADINE HYDROCHLORIDE
     Dosage: DOSE UNKNOWN
  8. MINODRONIC ACID [Concomitant]
     Active Substance: MINODRONIC ACID
     Dosage: DOSE UNKNOWN

REACTIONS (1)
  - Seizure [Recovered/Resolved]

NARRATIVE: CASE EVENT DATE: 20240502
